FAERS Safety Report 13777175 (Version 2)
Quarter: 2018Q1

REPORT INFORMATION
  Report Type: Report from Study
  Country: DE (occurrence: DE)
  Receive Date: 20170721
  Receipt Date: 20180323
  Transmission Date: 20180508
  Serious: Yes (Other)
  Sender: FDA-Public Use
  Company Number: DE-AMGEN-DEUSL2017051324

PATIENT
  Age: 48 Year
  Sex: Female
  Weight: 59 kg

DRUGS (5)
  1. FLUOROURACIL. [Concomitant]
     Active Substance: FLUOROURACIL
     Indication: COLON CANCER METASTATIC
     Dosage: 2400 MG/M2, Q2WK
     Route: 041
     Dates: start: 20160308, end: 20160809
  2. NATRIUMFOLINAT [Concomitant]
     Active Substance: FOLATE SODIUM
     Indication: COLON CANCER METASTATIC
     Dosage: 400 MG/M2, Q2WK
     Dates: start: 20160308, end: 20160809
  3. FLUOROURACIL. [Concomitant]
     Active Substance: FLUOROURACIL
     Dosage: 400 MG/M2, Q2WK
     Route: 040
     Dates: start: 20160308, end: 20160809
  4. IRINOTECAN [Concomitant]
     Active Substance: IRINOTECAN
     Indication: COLON CANCER METASTATIC
     Dosage: 180 MG/M2, Q2WK
     Dates: start: 20160308, end: 20160517
  5. PANITUMUMAB [Suspect]
     Active Substance: PANITUMUMAB
     Indication: COLON CANCER METASTATIC
     Dosage: 6 MG/KG BODY WEIGHT, UNK (350 MG TOTAL)
     Route: 042
     Dates: start: 20160405, end: 20160502

REACTIONS (5)
  - Erythema multiforme [Recovered/Resolved]
  - Face oedema [Unknown]
  - Burning sensation [Unknown]
  - Rash [Recovered/Resolved]
  - Erythema [Unknown]

NARRATIVE: CASE EVENT DATE: 20160407
